FAERS Safety Report 6665558-0 (Version None)
Quarter: 2010Q2

REPORT INFORMATION
  Report Type: 
  Country: None (occurrence: None)
  Receive Date: 20100402
  Receipt Date: 20100323
  Transmission Date: 20101027
  Serious: No
  Sender: FDA-Public Use
  Company Number: PHHY2010US18529

PATIENT
  Sex: Female

DRUGS (8)
  1. TASIGNA [Suspect]
     Indication: CHRONIC MYELOID LEUKAEMIA
     Dosage: 400 MG, BID
     Route: 048
     Dates: start: 20090101
  2. MORPHINE [Concomitant]
  3. METOPROLOL TARTRATE [Concomitant]
  4. EFFEXOR XR [Concomitant]
  5. SOMA [Concomitant]
  6. PRILOSEC [Concomitant]
  7. VITAMINS [Concomitant]
  8. STOOL SOFTENER [Concomitant]

REACTIONS (1)
  - VAGINITIS BACTERIAL [None]
